FAERS Safety Report 8485363-2 (Version None)
Quarter: 2012Q3

REPORT INFORMATION
  Report Type: 
  Country: None (occurrence: None)
  Receive Date: 20120703
  Receipt Date: 20120625
  Transmission Date: 20120928
  Serious: Yes (Other)
  Sender: FDA-Public Use
  Company Number: US-FRI-1000036625

PATIENT
  Sex: Female

DRUGS (1)
  1. THYROID TAB [Suspect]

REACTIONS (6)
  - LETHARGY [None]
  - ASTHENIA [None]
  - MOVEMENT DISORDER [None]
  - SUICIDAL IDEATION [None]
  - DRUG INEFFECTIVE [None]
  - DEPRESSION [None]
